FAERS Safety Report 15300034 (Version 5)
Quarter: 2018Q4

REPORT INFORMATION
  Report Type: Spontaneous
  Country: US (occurrence: US)
  Receive Date: 20180821
  Receipt Date: 20181016
  Transmission Date: 20190204
  Serious: No
  Sender: FDA-Public Use
  Company Number: US-PFIZER INC-2018336545

PATIENT
  Age: 82 Year
  Sex: Female
  Weight: 81 kg

DRUGS (7)
  1. TORSEMIDE. [Concomitant]
     Active Substance: TORSEMIDE
     Dosage: UNK
  2. CARVEDILOL. [Concomitant]
     Active Substance: CARVEDILOL
     Dosage: UNK
  3. POTASSIUM [Concomitant]
     Active Substance: POTASSIUM
     Dosage: UNK
  4. LYRICA [Suspect]
     Active Substance: PREGABALIN
     Dosage: 200 MG, DAILY (ONE IN THE MORNING AND ONE IN THE EVENING)
  5. LYRICA [Suspect]
     Active Substance: PREGABALIN
     Indication: NEURALGIA
     Dosage: 400 MG, DAILY (TWO IN THE MORNING AND TWO IN EVENING)
  6. LYRICA [Suspect]
     Active Substance: PREGABALIN
     Dosage: 300 MG, DAILY (ONE IN THE MORNING AND TWO IN THE EVENING)
  7. LYRICA [Suspect]
     Active Substance: PREGABALIN
     Dosage: 50 MG, 4X/DAY (2 IN THE MORNING AND 2 IN THE EVENING)

REACTIONS (4)
  - Poor quality sleep [Recovering/Resolving]
  - Intentional product misuse [Unknown]
  - Memory impairment [Unknown]
  - Insomnia [Unknown]
